FAERS Safety Report 5232541-1 (Version None)
Quarter: 2007Q1

REPORT INFORMATION
  Report Type: 
  Country: None (occurrence: None)
  Receive Date: 20070207
  Receipt Date: 20070129
  Transmission Date: 20070707
  Serious: Yes (Hospitalization)
  Sender: FDA-Public Use
  Company Number: LU-GLAXOSMITHKLINE-B0440817A

PATIENT
  Sex: Female

DRUGS (4)
  1. LAMOTRIGINE [Suspect]
     Indication: DRUG USE FOR UNKNOWN INDICATION
     Dosage: 50MG TWICE PER DAY
     Route: 065
  2. TRIMETHOPRIM [Concomitant]
     Indication: URINARY TRACT INFECTION
  3. CEPHALEXIN [Concomitant]
     Indication: URINARY TRACT INFECTION
  4. NITROFURANTOIN [Concomitant]
     Indication: URINARY TRACT INFECTION

REACTIONS (9)
  - ABDOMINAL PAIN [None]
  - CHROMATURIA [None]
  - DIZZINESS [None]
  - FAECES PALE [None]
  - FIBROSIS [None]
  - HEPATITIS [None]
  - HEPATOTOXICITY [None]
  - JAUNDICE [None]
  - NAUSEA [None]
